FAERS Safety Report 15181162 (Version 1)
Quarter: 2018Q3

REPORT INFORMATION
  Report Type: Report from Study
  Country: US (occurrence: US)
  Receive Date: 20180723
  Receipt Date: 20180723
  Transmission Date: 20181010
  Serious: Yes (Hospitalization, Disabling, Other)
  Sender: FDA-Public Use
  Company Number: US-SA-2018SA092026

PATIENT
  Age: 49 Year
  Sex: Female

DRUGS (2)
  1. ALEMTUZUMAB [Suspect]
     Active Substance: ALEMTUZUMAB
     Indication: MULTIPLE SCLEROSIS
     Dosage: 12 MG,QD
     Route: 041
     Dates: start: 20180312, end: 20180316
  2. PARACETAMOL [Concomitant]
     Active Substance: ACETAMINOPHEN
     Dosage: 1000 MG,UNK
     Route: 065

REACTIONS (21)
  - Neck pain [Recovered/Resolved]
  - Muscle spasms [Not Recovered/Not Resolved]
  - Bedridden [Not Recovered/Not Resolved]
  - Dyspnoea [Recovered/Resolved]
  - Anal incontinence [Not Recovered/Not Resolved]
  - Hyperventilation [Not Recovered/Not Resolved]
  - Chest pain [Not Recovered/Not Resolved]
  - Multiple sclerosis [Not Recovered/Not Resolved]
  - Urinary incontinence [Not Recovered/Not Resolved]
  - Pain [Not Recovered/Not Resolved]
  - Memory impairment [Not Recovered/Not Resolved]
  - Fatigue [Not Recovered/Not Resolved]
  - Myocardial infarction [Recovered/Resolved]
  - Pain in extremity [Recovered/Resolved]
  - Headache [Not Recovered/Not Resolved]
  - Oropharyngeal pain [Not Recovered/Not Resolved]
  - Speech disorder [Not Recovered/Not Resolved]
  - Chest discomfort [Recovered/Resolved]
  - Neuropathy peripheral [Not Recovered/Not Resolved]
  - Back pain [Not Recovered/Not Resolved]
  - Peripheral swelling [Recovering/Resolving]

NARRATIVE: CASE EVENT DATE: 2018
